FAERS Safety Report 7351609-7 (Version None)
Quarter: 2011Q1

REPORT INFORMATION
  Report Type: 
  Country: None (occurrence: None)
  Receive Date: 20110315
  Receipt Date: 20110309
  Transmission Date: 20110831
  Serious: No
  Sender: FDA-Public Use
  Company Number: US-ROXANE LABORATORIES, INC.-2011-RO-00288RO

PATIENT
  Sex: Female

DRUGS (5)
  1. OXCARBAZEPINE [Suspect]
     Dosage: 2400 MG
     Route: 048
  2. PLEXION [Concomitant]
     Indication: ACNE
  3. TRETINOIN [Concomitant]
     Indication: ACNE
  4. MESIDIAC CC [Concomitant]
     Indication: HYPERTENSION
  5. OXCARBAZEPINE [Suspect]
     Indication: PETIT MAL EPILEPSY
     Dosage: 1800 MG
     Route: 048
     Dates: start: 20070101

REACTIONS (3)
  - INCONTINENCE [None]
  - FEELING ABNORMAL [None]
  - DRUG INEFFECTIVE [None]
